FAERS Safety Report 8108299-5 (Version None)
Quarter: 2012Q1

REPORT INFORMATION
  Report Type: 
  Country: None (occurrence: None)
  Receive Date: 20120202
  Receipt Date: 20120123
  Transmission Date: 20120608
  Serious: Yes (Hospitalization, Other)
  Sender: FDA-Public Use
  Company Number: PHHY2012DE005657

PATIENT
  Sex: Female

DRUGS (8)
  1. DIOVAN [Suspect]
     Indication: HYPERTENSION
     Dosage: 160 MG, QD
     Route: 048
     Dates: start: 20110101
  2. INSULIN [Concomitant]
     Indication: DIABETES MELLITUS
  3. PLAVIX [Concomitant]
     Dosage: UNK
  4. RASILEZ [Suspect]
     Indication: HYPERTENSION
     Dosage: 150 MG, BID
     Route: 048
     Dates: start: 20110101
  5. RASILEZ [Suspect]
     Dosage: 300 MG, BID
     Route: 048
     Dates: start: 20110101
  6. EZETIMIBE [Concomitant]
  7. DIOVAN HCT [Suspect]
     Indication: HYPERTENSION
     Dosage: 1 DF, QD
     Route: 048
     Dates: start: 20110101
  8. BISOPROLOL [Concomitant]
     Dosage: 20 MG/DAY

REACTIONS (5)
  - HYPERTENSION [None]
  - BLOOD PRESSURE SYSTOLIC INCREASED [None]
  - RENAL IMPAIRMENT [None]
  - BLOOD PRESSURE FLUCTUATION [None]
  - SWELLING FACE [None]
